FAERS Safety Report 9880424 (Version 1)
Quarter: 2014Q1

REPORT INFORMATION
  Report Type: Spontaneous
  Country: US (occurrence: None)
  Receive Date: 20140206
  Receipt Date: 20140206
  Transmission Date: 20141002
  Serious: Yes (Life-Threatening)
  Sender: FDA-Public Use
  Company Number: None

PATIENT
  Age: 70 Year
  Sex: Male
  Weight: 72.58 kg

DRUGS (1)
  1. LANTUS SOLOSTAR 100 UNITS/ML [Suspect]
     Indication: DIABETES MELLITUS
     Dosage: 20 UNITS/INJECTION?ONCE DAILY ?GIVEN INTO/UNDER THE SKIN

REACTIONS (4)
  - Apparent life threatening event [None]
  - Blood glucose decreased [None]
  - Fatigue [None]
  - Device malfunction [None]
